FAERS Safety Report 18612813 (Version 4)
Quarter: 2021Q1

REPORT INFORMATION
  Report Type: Report from Study
  Country: DE (occurrence: DE)
  Receive Date: 20201214
  Receipt Date: 20210302
  Transmission Date: 20210419
  Serious: Yes (Hospitalization)
  Sender: FDA-Public Use
  Company Number: DE-BRISTOL-MYERS SQUIBB COMPANY-BMS-2020-105171

PATIENT
  Age: 56 Year
  Sex: Female
  Weight: 66.4 kg

DRUGS (4)
  1. NIVOLUMAB [Suspect]
     Active Substance: NIVOLUMAB
     Dosage: 69 MILLIGRAM
     Route: 042
     Dates: start: 20201218, end: 20201218
  2. NIVOLUMAB [Suspect]
     Active Substance: NIVOLUMAB
     Indication: SMALL CELL LUNG CANCER
     Dosage: 69 MILLIGRAM
     Route: 042
     Dates: start: 20201119, end: 20201119
  3. IPILIMUMAB [Suspect]
     Active Substance: IPILIMUMAB
     Indication: SMALL CELL LUNG CANCER
     Dosage: 207 MILLIGRAM
     Route: 042
     Dates: start: 20201119, end: 20201119
  4. IPILIMUMAB [Suspect]
     Active Substance: IPILIMUMAB
     Dosage: 207 MILLIGRAM
     Route: 042
     Dates: start: 20201218, end: 20201218

REACTIONS (1)
  - General physical health deterioration [Recovered/Resolved]

NARRATIVE: CASE EVENT DATE: 20201207
